FAERS Safety Report 8567358-3 (Version None)
Quarter: 2012Q3

REPORT INFORMATION
  Report Type: 
  Country: None (occurrence: None)
  Receive Date: 20120803
  Receipt Date: 20120729
  Transmission Date: 20120928
  Serious: Yes (Other)
  Sender: FDA-Public Use
  Company Number: PHEH2012US015153

PATIENT
  Sex: Male
  Weight: 69.388 kg

DRUGS (4)
  1. SIMVASTATIN [Concomitant]
  2. TRAVATAN [Concomitant]
  3. GILENYA [Suspect]
     Indication: MULTIPLE SCLEROSIS
     Dosage: 0.5 MG, QD
     Route: 048
  4. COSOPT [Concomitant]

REACTIONS (8)
  - MUSCLE SPASTICITY [None]
  - VISION BLURRED [None]
  - GAIT SPASTIC [None]
  - CLUMSINESS [None]
  - FEELING ABNORMAL [None]
  - GLAUCOMA [None]
  - SLUGGISHNESS [None]
  - SPEECH DISORDER [None]
